FAERS Safety Report 9726534 (Version 5)
Quarter: 2014Q2

REPORT INFORMATION
  Report Type: Report from Study
  Country: JP (occurrence: JP)
  Receive Date: 20131203
  Receipt Date: 20140401
  Transmission Date: 20141212
  Serious: Yes (Other)
  Sender: FDA-Public Use
  Company Number: JP-009507513-1312JPN000679

PATIENT
  Age: 87 Year
  Sex: Male

DRUGS (7)
  1. FOSAPREPITANT DIMEGLUMINE [Suspect]
     Indication: PROPHYLAXIS OF NAUSEA AND VOMITING
     Dosage: 150 MG, ONCE
     Route: 041
     Dates: start: 20130529, end: 20130529
  2. FLUDARA [Suspect]
     Indication: CHRONIC LYMPHOCYTIC LEUKAEMIA
     Dosage: 15 MG, QD
     Route: 041
     Dates: start: 20130529, end: 20130530
  3. PREDONINE [Suspect]
     Indication: CHRONIC LYMPHOCYTIC LEUKAEMIA
     Dosage: 10 MG, QD
     Route: 065
     Dates: start: 20130529, end: 20130602
  4. ALOXI [Concomitant]
     Dosage: UNK
     Dates: start: 20130529, end: 20130529
  5. GASTER [Concomitant]
     Dosage: UNK
     Dates: start: 20130529, end: 20130602
  6. LASIX (FUROSEMIDE) [Concomitant]
     Dosage: UNK
     Dates: start: 20130529, end: 20130602
  7. DEXTROSE [Concomitant]
     Dosage: UNK
     Dates: start: 20130529, end: 20130602

REACTIONS (2)
  - Renal failure acute [Recovered/Resolved]
  - Tumour lysis syndrome [Unknown]
